FAERS Safety Report 18667332 (Version 1)
Quarter: 2020Q4

REPORT INFORMATION
  Report Type: Spontaneous
  Country: US (occurrence: US)
  Receive Date: 20201228
  Receipt Date: 20201228
  Transmission Date: 20210114
  Serious: No
  Sender: FDA-Public Use
  Company Number: US-AUROBINDO-AUR-APL-2020-036109

PATIENT
  Age: 41 Year
  Sex: Female
  Weight: 68 kg

DRUGS (1)
  1. BUPIVACAINE HYDROCHLORIDE INJECTION USP 0.5% (5 MG/ML) [Suspect]
     Active Substance: BUPIVACAINE HYDROCHLORIDE
     Indication: PELVIC PAIN
     Dosage: 5 MILLIGRAM PER MILLILETER
     Route: 065
     Dates: start: 20200714, end: 20200714

REACTIONS (4)
  - Asthenia [Recovering/Resolving]
  - Hypoaesthesia [Recovering/Resolving]
  - Gait inability [Recovering/Resolving]
  - Therapeutic product effect prolonged [Recovering/Resolving]

NARRATIVE: CASE EVENT DATE: 20200714
